FAERS Safety Report 8828290 (Version 1)
Quarter: 2012Q4

REPORT INFORMATION
  Report Type: 
  Country: BR (occurrence: BR)
  Receive Date: 20121005
  Receipt Date: 20121005
  Transmission Date: 20130627
  Serious: Yes (Other)
  Sender: FDA-Public Use
  Company Number: BR-AMGEN-BRASP2012063147

PATIENT
  Age: 46 Year
  Sex: Male
  Weight: 56 kg

DRUGS (2)
  1. ENBREL [Suspect]
     Indication: PSORIATIC ARTHROPATHY
     Dosage: 50 mg, once weekly
     Route: 058
     Dates: end: 20120906
  2. PREDNISONE [Concomitant]
     Dosage: UNK
     Dates: start: 1996

REACTIONS (3)
  - Pelvic fracture [Unknown]
  - Wrist fracture [Unknown]
  - Fall [Unknown]
